FAERS Safety Report 4527081-9 (Version None)
Quarter: 2004Q4

REPORT INFORMATION
  Report Type: 
  Country: None (occurrence: None)
  Receive Date: 20041129
  Receipt Date: 20040421
  Transmission Date: 20050328
  Serious: Yes (Hospitalization)
  Sender: FDA-Public Use
  Company Number: USA021022802

PATIENT
  Age: 85 Year
  Sex: Female

DRUGS (7)
  1. ZYPREXA [Suspect]
     Indication: DEMENTIA
     Dates: end: 20031001
  2. PROPYLTHIOURACIL [Concomitant]
  3. ZOLOFT [Concomitant]
  4. CELEBREX [Concomitant]
  5. COLACE (DOCUSATE SODIUM) [Concomitant]
  6. ASPIRIN [Concomitant]
  7. ACETAMINOPHEN [Concomitant]

REACTIONS (1)
  - BLOOD GLUCOSE DECREASED [None]
